FAERS Safety Report 23262390 (Version 1)
Quarter: 2023Q4

REPORT INFORMATION
  Report Type: Spontaneous
  Country: FR (occurrence: FR)
  Receive Date: 20231205
  Receipt Date: 20231205
  Transmission Date: 20240110
  Serious: Yes (Life-Threatening, Other)
  Sender: FDA-Public Use
  Company Number: FR-SA-2023SA370871

PATIENT
  Age: 60 Year
  Sex: Male

DRUGS (3)
  1. ENOXAPARIN SODIUM [Suspect]
     Active Substance: ENOXAPARIN SODIUM
  2. AMOXICILLIN [Suspect]
     Active Substance: AMOXICILLIN
  3. BORTEZOMIB [Suspect]
     Active Substance: BORTEZOMIB

REACTIONS (1)
  - Drug reaction with eosinophilia and systemic symptoms [Unknown]
